FAERS Safety Report 9672806 (Version 2)
Quarter: 2014Q2

REPORT INFORMATION
  Report Type: Spontaneous
  Country: US (occurrence: US)
  Receive Date: 20131106
  Receipt Date: 20140501
  Transmission Date: 20141212
  Serious: No
  Sender: FDA-Public Use
  Company Number: US-AMGEN-USASP2013068865

PATIENT
  Age: 61 Year
  Sex: Female

DRUGS (2)
  1. ENBREL [Suspect]
     Indication: RHEUMATOID ARTHRITIS
     Dosage: 50 MG, QWK
     Route: 065
     Dates: start: 20130923, end: 201401
  2. METHOTREXATE [Concomitant]
     Dosage: UNK

REACTIONS (13)
  - Pain in extremity [Not Recovered/Not Resolved]
  - Joint swelling [Not Recovered/Not Resolved]
  - Arthralgia [Not Recovered/Not Resolved]
  - Contusion [Recovered/Resolved]
  - Hypoaesthesia [Unknown]
  - Muscle spasms [Recovered/Resolved]
  - Skin discolouration [Not Recovered/Not Resolved]
  - Pallor [Not Recovered/Not Resolved]
  - Irritability [Not Recovered/Not Resolved]
  - Varicose vein [Not Recovered/Not Resolved]
  - Headache [Recovered/Resolved]
  - Eye pain [Recovered/Resolved]
  - Injection site bruising [Recovered/Resolved]
